FAERS Safety Report 22654685 (Version 1)
Quarter: 2023Q2

REPORT INFORMATION
  Report Type: Spontaneous
  Country: US (occurrence: US)
  Receive Date: 20230629
  Receipt Date: 20230629
  Transmission Date: 20230722
  Serious: Yes (Other)
  Sender: FDA-Public Use
  Company Number: US-NOVOPROD-1054103

PATIENT
  Age: 74 Year
  Sex: Female

DRUGS (1)
  1. OZEMPIC [Suspect]
     Active Substance: SEMAGLUTIDE
     Indication: Type 2 diabetes mellitus
     Dosage: 0.5 MG
     Route: 058
     Dates: start: 202106

REACTIONS (5)
  - Stent removal [Unknown]
  - Oropharyngeal pain [Not Recovered/Not Resolved]
  - Weight decreased [Recovered/Resolved]
  - Melanocytic naevus [Unknown]
  - Thyroid mass [Unknown]

NARRATIVE: CASE EVENT DATE: 20210901
